FAERS Safety Report 17012616 (Version 2)
Quarter: 2020Q1

REPORT INFORMATION
  Report Type: Spontaneous
  Country: US (occurrence: US)
  Receive Date: 20191109
  Receipt Date: 20200102
  Transmission Date: 20200409
  Serious: Yes (Other)
  Sender: FDA-Public Use
  Company Number: US-ROCHE-2459125

PATIENT
  Age: 36 Year
  Sex: Female

DRUGS (3)
  1. ECULIZUMAB [Concomitant]
     Active Substance: ECULIZUMAB
     Route: 042
  2. RITUXIMAB. [Suspect]
     Active Substance: RITUXIMAB
     Indication: SYSTEMIC LUPUS ERYTHEMATOSUS
     Route: 065
  3. RITUXIMAB. [Suspect]
     Active Substance: RITUXIMAB
     Indication: ANTIPHOSPHOLIPID SYNDROME

REACTIONS (3)
  - Abortion spontaneous [Unknown]
  - Hypersensitivity [Unknown]
  - Maternal exposure during pregnancy [Unknown]
